FAERS Safety Report 19461504 (Version 1)
Quarter: 2021Q2

REPORT INFORMATION
  Report Type: Spontaneous
  Country: JP (occurrence: JP)
  Receive Date: 20210625
  Receipt Date: 20210625
  Transmission Date: 20210717
  Serious: Yes (Other)
  Sender: FDA-Public Use
  Company Number: JP-ACACIA PHARMA LIMITED-2113117

PATIENT
  Age: 77 Year
  Sex: Female

DRUGS (5)
  1. REMIFENTANIL HYDROCHLORIDE. [Concomitant]
     Active Substance: REMIFENTANIL HYDROCHLORIDE
     Route: 042
  2. BYFAVO [Suspect]
     Active Substance: REMIMAZOLAM BESYLATE
     Indication: GENERAL ANAESTHESIA
     Route: 042
  3. FLUMAZENIL. [Concomitant]
     Active Substance: FLUMAZENIL
     Route: 042
  4. FENTANYL. [Concomitant]
     Active Substance: FENTANYL
     Route: 042
  5. ROCURONIUM [Concomitant]
     Active Substance: ROCURONIUM BROMIDE
     Route: 065

REACTIONS (2)
  - Logorrhoea [Recovered/Resolved]
  - Restlessness [Recovered/Resolved]
